FAERS Safety Report 5331358-7 (Version None)
Quarter: 2007Q2

REPORT INFORMATION
  Report Type: 
  Country: None (occurrence: None)
  Receive Date: 20070522
  Receipt Date: 20070510
  Transmission Date: 20071010
  Serious: Yes (Hospitalization)
  Sender: FDA-Public Use
  Company Number: US-ELI_LILLY_AND_COMPANY-US200705003081

PATIENT
  Age: 58 Year
  Sex: Female

DRUGS (4)
  1. FORTEO [Suspect]
     Dosage: UNK, EACH EVENING
     Dates: start: 20060101, end: 20060301
  2. FORTEO [Suspect]
     Dosage: UNK, 3/W
     Dates: start: 20060801
  3. FORTEO [Suspect]
     Dosage: UNK, 5/W
     Dates: start: 20060101
  4. FORTEO [Suspect]
     Dosage: UNK, EACH MORNING
     Dates: start: 20060101

REACTIONS (6)
  - BENIGN NEOPLASM [None]
  - GASTROOESOPHAGEAL REFLUX DISEASE [None]
  - INCISION SITE PAIN [None]
  - INJECTION SITE BRUISING [None]
  - NAUSEA [None]
  - SURGERY [None]
